FAERS Safety Report 9764658 (Version 1)
Quarter: 2013Q4

REPORT INFORMATION
  Report Type: Report from Study
  Country: US (occurrence: US)
  Receive Date: 20131217
  Receipt Date: 20131217
  Transmission Date: 20140711
  Serious: Yes (Other)
  Sender: FDA-Public Use
  Company Number: US-ROCHE-1319401

PATIENT
  Age: 58 Year
  Sex: Female
  Weight: 65.38 kg

DRUGS (9)
  1. NUTROPIN AQ [Suspect]
     Indication: GROWTH HORMONE DEFICIENCY
     Route: 058
  2. MYRBETRIQ [Concomitant]
     Route: 048
  3. CRESTOR [Concomitant]
     Route: 048
  4. BENICAR HCT [Concomitant]
     Dosage: 20MG/12.5
     Route: 048
  5. ZYRTEC [Concomitant]
     Route: 048
  6. PREMARIN [Concomitant]
     Route: 048
  7. SYNTHROID [Concomitant]
     Route: 065
  8. FOLIC ACID [Concomitant]
  9. FISH OIL [Concomitant]

REACTIONS (3)
  - Glycosylated haemoglobin increased [Unknown]
  - Thyroxine increased [Unknown]
  - Blood thyroid stimulating hormone decreased [Unknown]
